FAERS Safety Report 17863397 (Version 2)
Quarter: 2020Q3

REPORT INFORMATION
  Report Type: Spontaneous
  Country: TW (occurrence: TW)
  Receive Date: 20200604
  Receipt Date: 20200714
  Transmission Date: 20201103
  Serious: Yes (Other)
  Sender: FDA-Public Use
  Company Number: NVSC2020TW096758

PATIENT
  Sex: Female

DRUGS (11)
  1. 5?FLUOROURACILO [Suspect]
     Active Substance: FLUOROURACIL
     Indication: RECTAL CANCER
     Dosage: UNK UNK, BIW
     Route: 042
  2. NIVOLUMAB [Suspect]
     Active Substance: NIVOLUMAB
     Indication: IMMUNOGLOBULIN THERAPY
     Route: 065
  3. REGORAFENIB. [Suspect]
     Active Substance: REGORAFENIB
     Indication: RADIOTHERAPY
     Route: 065
  4. DABRAFENIB [Suspect]
     Active Substance: DABRAFENIB
     Indication: RECTAL CANCER
     Dosage: UNK UNK, BID (2 MG QD/150 MG)
     Route: 048
     Dates: start: 20200106, end: 20200423
  5. BEVACIZUMAB. [Concomitant]
     Active Substance: BEVACIZUMAB
     Indication: RECTAL CANCER
     Dosage: UNK
     Route: 065
  6. TRAMETINIB [Suspect]
     Active Substance: TRAMETINIB
     Indication: RECTAL CANCER
     Dosage: UNK UNK, BID (2 MG QD/150 MG)
     Route: 048
     Dates: start: 20200106, end: 20200423
  7. TIPIRACIL [Concomitant]
     Active Substance: TIPIRACIL
     Indication: RECTAL CANCER
     Dosage: UNK
     Route: 065
  8. IRINOTECAN [Concomitant]
     Active Substance: IRINOTECAN
     Indication: RECTAL CANCER
     Dosage: UNK
     Route: 065
  9. OXALIPLATIN. [Suspect]
     Active Substance: OXALIPLATIN
     Indication: RECTAL CANCER
     Dosage: UNK UNK, BIW
     Route: 042
     Dates: start: 201807, end: 20190928
  10. CETUXIMAB. [Concomitant]
     Active Substance: CETUXIMAB
     Indication: RECTAL CANCER
     Dosage: 250 MG/M2, QW
     Route: 042
     Dates: start: 20200106, end: 20200423
  11. LEUCOVORIN. [Concomitant]
     Active Substance: LEUCOVORIN
     Indication: RECTAL CANCER
     Dosage: UNK
     Route: 065

REACTIONS (4)
  - Product use in unapproved indication [Unknown]
  - Treatment failure [Unknown]
  - Rectal cancer [Unknown]
  - Malignant neoplasm progression [Unknown]

NARRATIVE: CASE EVENT DATE: 20200511
